FAERS Safety Report 13006610 (Version 1)
Quarter: 2016Q4

REPORT INFORMATION
  Report Type: Spontaneous
  Country: US (occurrence: US)
  Receive Date: 20161207
  Receipt Date: 20161207
  Transmission Date: 20170207
  Serious: No
  Sender: FDA-Public Use
  Company Number: None

PATIENT
  Age: 66 Year
  Sex: Female

DRUGS (1)
  1. CAPECITABINE. [Suspect]
     Active Substance: CAPECITABINE
     Indication: RECTAL CANCER
     Route: 048
     Dates: start: 20160506, end: 20161207

REACTIONS (3)
  - Palmar-plantar erythrodysaesthesia syndrome [None]
  - Asthenia [None]
  - Skin hyperpigmentation [None]

NARRATIVE: CASE EVENT DATE: 20161128
